FAERS Safety Report 7904169-3 (Version None)
Quarter: 2011Q4

REPORT INFORMATION
  Report Type: 
  Country: None (occurrence: None)
  Receive Date: 20111109
  Receipt Date: 20111104
  Transmission Date: 20120403
  Serious: Yes (Hospitalization, Other)
  Sender: FDA-Public Use
  Company Number: FR-PFIZER INC-2011270412

PATIENT
  Age: 87 Year
  Sex: Female

DRUGS (9)
  1. FERROUS SULFATE TAB [Concomitant]
     Dosage: UNK
  2. ALLOPURINOL [Concomitant]
     Dosage: 10
  3. INSULATARD NPH HUMAN [Concomitant]
     Dosage: UNK
  4. LYRICA [Suspect]
     Dosage: 75 MG, 1X/DAY
     Route: 048
     Dates: end: 20110423
  5. AMLODIPINE BESYLATE [Concomitant]
     Dosage: 10
  6. EUPRESSYL [Suspect]
     Dosage: 30 MG, 1X/DAY
     Route: 048
     Dates: end: 20110423
  7. ACETAMINOPHEN [Concomitant]
     Dosage: UNK
  8. COUMADIN [Suspect]
     Dosage: 5 MG, 1X/DAY
     Route: 048
     Dates: start: 20110801, end: 20110824
  9. LEVOTHYROXINE SODIUM [Concomitant]
     Dosage: 25

REACTIONS (4)
  - CRANIOCEREBRAL INJURY [None]
  - HYPOTENSION [None]
  - JOINT INJURY [None]
  - FALL [None]
